FAERS Safety Report 17857675 (Version 2)
Quarter: 2020Q2

REPORT INFORMATION
  Report Type: Spontaneous
  Country: FR (occurrence: FR)
  Receive Date: 20200604
  Receipt Date: 20200612
  Transmission Date: 20200714
  Serious: Yes (Hospitalization, Other)
  Sender: FDA-Public Use
  Company Number: FR-ALK-ABELLO A/S-2020AA001706

PATIENT

DRUGS (3)
  1. ACARIZAX [Suspect]
     Active Substance: DERMATOPHAGOIDES FARINAE\DERMATOPHAGOIDES PTERONYSSINUS
     Indication: ASTHMA
  2. DESLORATADINE. [Concomitant]
     Active Substance: DESLORATADINE
     Dosage: 2 TAB
     Route: 048
  3. ACARIZAX [Suspect]
     Active Substance: DERMATOPHAGOIDES FARINAE\DERMATOPHAGOIDES PTERONYSSINUS
     Indication: RHINITIS
     Dosage: 12 SQ
     Route: 060
     Dates: start: 20200515, end: 20200525

REACTIONS (5)
  - Odynophagia [Recovered/Resolved]
  - Dyspnoea [Recovered/Resolved]
  - Respiratory distress [Recovered/Resolved]
  - Chest pain [Recovered/Resolved]
  - Pharyngeal swelling [Recovered/Resolved]

NARRATIVE: CASE EVENT DATE: 202005
